FAERS Safety Report 6757647-7 (Version None)
Quarter: 2010Q2

REPORT INFORMATION
  Report Type: 
  Country: None (occurrence: None)
  Receive Date: 20100607
  Receipt Date: 20100522
  Transmission Date: 20101027
  Serious: No
  Sender: FDA-Public Use
  Company Number: US-B.I. PHARMACEUTICALS,INC./RIDGEFIELD-2010-BP-05973PF

PATIENT
  Sex: Female

DRUGS (4)
  1. SPIRIVA [Suspect]
  2. CHANTIX [Suspect]
     Dates: start: 20100305
  3. LUNESTA [Concomitant]
  4. SYMBICORT [Concomitant]

REACTIONS (3)
  - ABNORMAL DREAMS [None]
  - DRUG INEFFECTIVE [None]
  - FEELING GUILTY [None]
